FAERS Safety Report 16785849 (Version 1)
Quarter: 2019Q3

REPORT INFORMATION
  Report Type: Spontaneous
  Country: US (occurrence: US)
  Receive Date: 20190909
  Receipt Date: 20190909
  Transmission Date: 20191005
  Serious: No
  Sender: FDA-Public Use
  Company Number: US-PFIZER INC-2019342031

PATIENT
  Age: 52 Year
  Sex: Female

DRUGS (1)
  1. ZYVOX [Suspect]
     Active Substance: LINEZOLID
     Dosage: 600 MG, 2X/DAY(Q12H)
     Route: 048

REACTIONS (3)
  - Fungal infection [Unknown]
  - Off label use [Unknown]
  - Product prescribing issue [Unknown]
